FAERS Safety Report 9991545 (Version 1)
Quarter: 2014Q1

REPORT INFORMATION
  Report Type: Spontaneous
  Country: ES (occurrence: ES)
  Receive Date: 20140310
  Receipt Date: 20140310
  Transmission Date: 20141002
  Serious: Yes (Other)
  Sender: FDA-Public Use
  Company Number: ES-ROXANE LABORATORIES, INC.-2014-RO-00346RO

PATIENT
  Age: 41 Year
  Sex: Female

DRUGS (9)
  1. MONTELUKAST SODIUM [Suspect]
     Indication: ASTHMA
     Dosage: 10 MG
     Route: 065
     Dates: start: 201111, end: 201201
  2. EFAVIRENZ [Suspect]
     Indication: HIV INFECTION
     Route: 065
     Dates: start: 200707
  3. ATRIPLA [Suspect]
     Indication: HIV INFECTION
     Route: 065
     Dates: start: 200811
  4. CORTICOSTEROIDS [Concomitant]
     Indication: ASTHMA
     Route: 055
  5. CORTICOSTEROIDS [Concomitant]
     Indication: CONJUNCTIVITIS ALLERGIC
  6. FORMOTEROL [Concomitant]
     Indication: ASTHMA
     Route: 065
  7. FORMOTEROL [Concomitant]
     Indication: CONJUNCTIVITIS ALLERGIC
  8. ANTIHISTAMINES [Concomitant]
     Indication: ASTHMA
     Route: 065
  9. ANTIHISTAMINES [Concomitant]
     Indication: CONJUNCTIVITIS ALLERGIC

REACTIONS (6)
  - Sleep disorder [Recovered/Resolved]
  - Abnormal dreams [Recovered/Resolved]
  - Irritability [Recovered/Resolved]
  - Confusional state [Recovered/Resolved]
  - Disturbance in attention [Recovered/Resolved]
  - Nightmare [Recovered/Resolved]
